FAERS Safety Report 25339736 (Version 1)
Quarter: 2025Q2

REPORT INFORMATION
  Report Type: Report from Study
  Country: ES (occurrence: ES)
  Receive Date: 20250521
  Receipt Date: 20250521
  Transmission Date: 20250716
  Serious: Yes (Other)
  Sender: TEVA
  Company Number: None

PATIENT
  Age: 62 Year
  Sex: Female
  Weight: 57.8 kg

DRUGS (1)
  1. TRAMADOL [Suspect]
     Active Substance: TRAMADOL
     Indication: Arthritis
     Route: 048
     Dates: start: 20240322

REACTIONS (16)
  - Respiratory distress [Unknown]
  - Fatigue [Unknown]
  - Insomnia [Unknown]
  - Gastrointestinal disorder [Unknown]
  - Nightmare [Unknown]
  - Confusional state [Unknown]
  - Sensory loss [Unknown]
  - Mood altered [Unknown]
  - Tinnitus [Unknown]
  - Nervous system disorder [Unknown]
  - Oedema [Unknown]
  - Sleep disorder [Unknown]
  - Vision blurred [Unknown]
  - Hypertension [Unknown]
  - Muscular weakness [Unknown]
  - Palpitations [Unknown]

NARRATIVE: CASE EVENT DATE: 20240322
